FAERS Safety Report 7951125-5 (Version None)
Quarter: 2011Q4

REPORT INFORMATION
  Report Type: 
  Country: None (occurrence: None)
  Receive Date: 20111125
  Receipt Date: 20111117
  Transmission Date: 20120403
  Serious: Yes (Life-Threatening, Other)
  Sender: FDA-Public Use
  Company Number: DSA_47948_2011

PATIENT
  Sex: Female
  Weight: 92.0802 kg

DRUGS (3)
  1. WELLBUTRIN XL [Suspect]
     Indication: DEPRESSION
     Dosage: (150 MG QD ORAL)
     Route: 048
     Dates: start: 20080101, end: 20110101
  2. CIPROFLOXACIN [Suspect]
     Indication: URINARY TRACT INFECTION
     Dosage: (DF ORAL)
     Route: 048
     Dates: end: 20111021
  3. PAXIL [Concomitant]

REACTIONS (3)
  - STEVENS-JOHNSON SYNDROME [None]
  - PLEURAL EFFUSION [None]
  - OEDEMA PERIPHERAL [None]
